FAERS Safety Report 4279899-8 (Version None)
Quarter: 2004Q1

REPORT INFORMATION
  Report Type: 
  Country: None (occurrence: None)
  Receive Date: 20040126
  Receipt Date: 20040109
  Transmission Date: 20041129
  Serious: Yes (Hospitalization)
  Sender: FDA-Public Use
  Company Number: 8000565

PATIENT
  Age: 20 Year
  Sex: Male
  Weight: 50 kg

DRUGS (5)
  1. KEPPRA [Suspect]
     Indication: EPILEPSY
     Dosage: 1000 MG 2/D PO
     Route: 048
     Dates: start: 20020401, end: 20030709
  2. KEPPRA [Suspect]
     Indication: EPILEPSY
     Dosage: 500 MG 5/D PO
     Route: 048
     Dates: start: 20030710
  3. LAMICTAL [Suspect]
     Indication: EPILEPSY
     Dosage: 200 MG 2/D PO
     Route: 048
     Dates: start: 20011201
  4. EPITOMAX [Suspect]
     Indication: EPILEPSY
     Dosage: 100 MG PO
     Route: 048
  5. EPITOMAX [Suspect]
     Indication: EPILEPSY
     Dosage: 75 MG PO
     Route: 048

REACTIONS (4)
  - BRAIN HYPOXIA [None]
  - CYTOLYTIC HEPATITIS [None]
  - RHABDOMYOLYSIS [None]
  - STRESS SYMPTOMS [None]
